FAERS Safety Report 9597135 (Version 1)
Quarter: 2013Q4

REPORT INFORMATION
  Report Type: Spontaneous
  Country: AE (occurrence: AE)
  Receive Date: 20131004
  Receipt Date: 20131004
  Transmission Date: 20140711
  Serious: Yes (Other)
  Sender: FDA-Public Use
  Company Number: AE-ABBVIE-13P-093-1151677-00

PATIENT
  Sex: Female

DRUGS (5)
  1. HUMIRA [Suspect]
     Indication: PSORIASIS
     Route: 058
     Dates: start: 20110117
  2. HUMIRA [Suspect]
     Dosage: 2 DOSES
  3. METHOTREXATE [Suspect]
     Indication: PRODUCT USED FOR UNKNOWN INDICATION
     Route: 048
     Dates: start: 201104
  4. METHOTREXATE [Suspect]
  5. METHOTREXATE [Suspect]
     Dosage: TAPERING

REACTIONS (4)
  - Ovarian enlargement [Unknown]
  - Psoriasis [Unknown]
  - Adverse drug reaction [Unknown]
  - Drug ineffective [Unknown]
